FAERS Safety Report 19894816 (Version 1)
Quarter: 2021Q3

REPORT INFORMATION
  Report Type: Spontaneous
  Country: US (occurrence: US)
  Receive Date: 20210928
  Receipt Date: 20210928
  Transmission Date: 20211014
  Serious: Yes (Hospitalization)
  Sender: FDA-Public Use
  Company Number: None

PATIENT
  Age: 68 Year
  Sex: Male
  Weight: 99.79 kg

DRUGS (1)
  1. ENTRESTO [Suspect]
     Active Substance: SACUBITRIL\VALSARTAN
     Indication: CARDIAC DISORDER
     Dosage: ?          QUANTITY:24 MG MILLIGRAM(S);?
     Route: 048
     Dates: start: 20210416, end: 20210424

REACTIONS (6)
  - Blood potassium increased [None]
  - Peripheral swelling [None]
  - Syncope [None]
  - Cardiac disorder [None]
  - Hypotension [None]
  - Renal failure [None]

NARRATIVE: CASE EVENT DATE: 20210424
